FAERS Safety Report 4567693-X (Version None)
Quarter: 2005Q1

REPORT INFORMATION
  Report Type: 
  Country: None (occurrence: None)
  Receive Date: 20050202
  Receipt Date: 20050120
  Transmission Date: 20050727
  Serious: Yes (Hospitalization)
  Sender: FDA-Public Use
  Company Number: JP-JNJFOC-20041206952

PATIENT
  Sex: Female
  Weight: 48 kg

DRUGS (19)
  1. REMICADE [Suspect]
     Route: 042
  2. REMICADE [Suspect]
     Route: 042
  3. REMICADE [Suspect]
     Indication: RHEUMATOID ARTHRITIS
     Route: 042
  4. RHEUMATREX [Concomitant]
     Route: 049
  5. RHEUMATREX [Concomitant]
     Route: 049
  6. PSL [Concomitant]
     Route: 049
  7. PSL [Concomitant]
     Route: 049
  8. PSL [Concomitant]
     Route: 049
  9. PSL [Concomitant]
     Indication: RHEUMATOID ARTHRITIS
     Route: 049
  10. VOLTAREN [Concomitant]
     Indication: RHEUMATOID ARTHRITIS
  11. RINGEREAZE [Concomitant]
     Indication: RHEUMATOID ARTHRITIS
     Route: 049
  12. ONON [Concomitant]
     Route: 049
  13. ZADITEN [Concomitant]
     Route: 049
  14. FERRUM [Concomitant]
     Route: 049
  15. FASTIC [Concomitant]
     Route: 049
  16. MUCOSTA [Concomitant]
     Route: 049
  17. CYANOCOBALAMIN [Concomitant]
     Route: 049
  18. ONEALPHA [Concomitant]
     Route: 049
  19. THEOLONG [Concomitant]
     Route: 049

REACTIONS (1)
  - TUBERCULOUS PLEURISY [None]
